FAERS Safety Report 12139049 (Version 11)
Quarter: 2017Q1

REPORT INFORMATION
  Report Type: Report from Study
  Country: BR (occurrence: BR)
  Receive Date: 20160302
  Receipt Date: 20170111
  Transmission Date: 20170428
  Serious: Yes (Life-Threatening, Hospitalization, Other)
  Sender: FDA-Public Use
  Company Number: PHHY2015BR071359

PATIENT
  Age: 49 Year
  Sex: Female
  Weight: 99 kg

DRUGS (34)
  1. MONOCORDIL [Concomitant]
     Active Substance: ISOSORBIDE MONONITRATE
     Indication: CARDIAC DISORDER
     Dosage: 40 MG, TID (STARTED 4 YEARS AGO)
     Route: 048
  2. MONOCORDIL [Concomitant]
     Active Substance: ISOSORBIDE MONONITRATE
     Dosage: 20 MG, BID
     Route: 048
  3. AMLODIPINE [Concomitant]
     Active Substance: AMLODIPINE BESYLATE
     Indication: HYPERTENSION
     Dosage: 20 MG, TID (STARTED 4 YEARS AGO)
     Route: 048
  4. AMITRIPTYLINE [Concomitant]
     Active Substance: AMITRIPTYLINE
     Indication: FIBROMYALGIA
     Dosage: 20 MG, BID (STARTED 12 YEARS AGO)
     Route: 048
  5. XOLAIR [Suspect]
     Active Substance: OMALIZUMAB
     Dosage: 150 MG, EVERY 15 DAYS
     Route: 058
     Dates: start: 20150507
  6. FLUOXETINE [Concomitant]
     Active Substance: FLUOXETINE HYDROCHLORIDE
     Indication: FIBROMYALGIA
     Dosage: 20 MG, BID (STARTED 12 YEARS AGO)
     Route: 048
  7. AMITRIPTYLINE [Concomitant]
     Active Substance: AMITRIPTYLINE
     Indication: DEPRESSION
     Dosage: 25 MG, QD (7 YEARS AGO)
     Route: 048
  8. XOLAIR [Suspect]
     Active Substance: OMALIZUMAB
     Indication: ASTHMA
     Dosage: 1.5 DF, BIW (1 AMPOULE AND HALF EVERY 15 DAYS)
     Route: 058
     Dates: start: 201302
  9. XOLAIR [Suspect]
     Active Substance: OMALIZUMAB
     Dosage: 150 MG, EVERY 15 DAYS
     Route: 058
     Dates: start: 20150326
  10. XOLAIR [Suspect]
     Active Substance: OMALIZUMAB
     Dosage: 375 MG, QMO
     Route: 058
  11. CLONAZEPAM. [Concomitant]
     Active Substance: CLONAZEPAM
     Indication: SLEEP DISORDER
  12. CLONAZEPAM. [Concomitant]
     Active Substance: CLONAZEPAM
     Indication: FIBROMYALGIA
  13. BEROTEC [Concomitant]
     Active Substance: FENOTEROL HYDROBROMIDE
     Indication: PRODUCT USED FOR UNKNOWN INDICATION
     Dosage: 30 DRP, UNK (04 VAPORIZATIONS PER DAY (EVERY 6 HOURS))
     Route: 055
     Dates: start: 201601
  14. XOLAIR [Suspect]
     Active Substance: OMALIZUMAB
     Dosage: 225 MG, BIW (EVERY 2 WEEKS)
     Route: 058
     Dates: start: 20150223
  15. ALENIA [Concomitant]
     Active Substance: BUDESONIDE\FORMOTEROL FUMARATE
     Indication: ASTHMA
     Dosage: 1 DF (ASPIRATION), BID (STARTED 7 OR 8 YEARS AGO)
     Route: 055
     Dates: start: 200911
  16. LOSARTAN. [Concomitant]
     Active Substance: LOSARTAN
     Indication: HYPERTENSION
     Dosage: 50 MG, TID (STARTED MANY YEARS AGO)
     Route: 048
     Dates: start: 200911
  17. CLONAZEPAM. [Concomitant]
     Active Substance: CLONAZEPAM
     Indication: ANXIETY
     Dosage: 2 MG, BID (STARTED 12 YEARS AGO)
     Route: 048
     Dates: start: 200911
  18. SEEBRI BREEZHALER [Suspect]
     Active Substance: GLYCOPYRROLATE
     Indication: PRODUCT USED FOR UNKNOWN INDICATION
     Dosage: 2 DF, QD (2 INHALATIONS PER DAY)
     Route: 055
  19. ALENIA [Concomitant]
     Active Substance: BUDESONIDE\FORMOTEROL FUMARATE
     Dosage: 2 DF, QD (2 ASPIRATIONS A DAY, STARTED 5 YEARS AGO)
     Route: 055
  20. DILTIAZEM. [Concomitant]
     Active Substance: DILTIAZEM
     Dosage: 40 MG, BID
     Route: 048
  21. FLUOXETINE [Concomitant]
     Active Substance: FLUOXETINE HYDROCHLORIDE
     Indication: DEPRESSION
  22. XOLAIR [Suspect]
     Active Substance: OMALIZUMAB
     Indication: CYSTIC FIBROSIS
     Dosage: 150 MG, QMO (1 AND A HALF AMPOULE PER MONTH/DIVIDED INTO 2 APPLICATIONS)
     Route: 058
     Dates: start: 201402
  23. XOLAIR [Suspect]
     Active Substance: OMALIZUMAB
     Dosage: 225 MG, EVERY TWO WEEKS
     Route: 058
     Dates: start: 20140212
  24. XOLAIR [Suspect]
     Active Substance: OMALIZUMAB
     Dosage: 1.5 DF, (1 VIAL AND HALF EVERY 15 DAYS, AS REPORTED
     Route: 058
     Dates: start: 201502
  25. XOLAIR [Suspect]
     Active Substance: OMALIZUMAB
     Dosage: UNK
     Route: 058
     Dates: end: 20151216
  26. ALENIA [Concomitant]
     Active Substance: BUDESONIDE\FORMOTEROL FUMARATE
     Dosage: 11 MG, QD
     Route: 055
  27. CLONAZEPAM. [Concomitant]
     Active Substance: CLONAZEPAM
     Indication: DEPRESSION
  28. METFORMIN [Concomitant]
     Active Substance: METFORMIN HYDROCHLORIDE
     Indication: DIABETES MELLITUS
     Dosage: 850 MG, BID (STARTED 3 YEARS AGO)
     Route: 048
  29. WARFARIN [Concomitant]
     Active Substance: WARFARIN
     Indication: PULMONARY EMBOLISM
     Dosage: 5 MG, TID (5 YEARS AGO)
     Route: 048
  30. ATROVENT [Concomitant]
     Active Substance: IPRATROPIUM BROMIDE
     Indication: PRODUCT USED FOR UNKNOWN INDICATION
     Dosage: 10 DRP, UNK (04 VAPORIZATIONS PER DAY (EVERY 6 HOURS))
     Route: 055
     Dates: start: 201601
  31. FUROSEMIDE. [Concomitant]
     Active Substance: FUROSEMIDE
     Indication: DIURETIC THERAPY
     Dosage: 40 MG, TID (STARTED MANY YEARS AGO)
     Route: 048
     Dates: start: 200911
  32. DILTIAZEM. [Concomitant]
     Active Substance: DILTIAZEM
     Indication: CARDIAC DISORDER
     Dosage: 60 MG, BID (STARTED 4 YEARS AGO)
     Route: 048
  33. OMEPRAZOLE. [Concomitant]
     Active Substance: OMEPRAZOLE
     Indication: PROPHYLAXIS
     Dosage: 20 MG, BID (STARTED MANY YEARS AGO)
     Route: 048
     Dates: start: 200911
  34. GLIBENCLAMIDE [Concomitant]
     Active Substance: GLYBURIDE
     Indication: DIABETES MELLITUS
     Dosage: 5 MG, BID (STARTED 3 MONTHS AGO)
     Route: 048

REACTIONS (18)
  - Generalised oedema [Unknown]
  - Fatigue [Not Recovered/Not Resolved]
  - Asthma [Recovering/Resolving]
  - Back pain [Recovering/Resolving]
  - H1N1 influenza [Recovered/Resolved]
  - Dengue fever [Recovering/Resolving]
  - Cough [Not Recovered/Not Resolved]
  - Pulmonary oedema [Unknown]
  - Dyspnoea [Unknown]
  - Pyrexia [Recovered/Resolved]
  - Wheezing [Unknown]
  - Pneumonia [Recovered/Resolved]
  - Cardiac arrest [Recovering/Resolving]
  - Platelet count decreased [Recovering/Resolving]
  - Filovirus infection [Recovering/Resolving]
  - Pulmonary pain [Recovered/Resolved]
  - Pyrexia [Recovered/Resolved]
  - Headache [Recovering/Resolving]

NARRATIVE: CASE EVENT DATE: 20151228
